FAERS Safety Report 19076850 (Version 1)
Quarter: 2021Q1

REPORT INFORMATION
  Report Type: Spontaneous
  Country: US (occurrence: US)
  Receive Date: 20210330
  Receipt Date: 20210330
  Transmission Date: 20210420
  Serious: Yes (Hospitalization, Other)
  Sender: FDA-Public Use
  Company Number: None

PATIENT

DRUGS (1)
  1. PIPERACILLIN AND TAZOBACTAM [Suspect]
     Active Substance: PIPERACILLIN SODIUM\TAZOBACTAM SODIUM

REACTIONS (9)
  - Dizziness [None]
  - Vomiting [None]
  - Dyspnoea [None]
  - Hypersensitivity [None]
  - Cellulitis [None]
  - Urticaria [None]
  - Hyperhidrosis [None]
  - Nausea [None]
  - Wheezing [None]

NARRATIVE: CASE EVENT DATE: 20190420
